FAERS Safety Report 21327142 (Version 1)
Quarter: 2022Q3

REPORT INFORMATION
  Report Type: Spontaneous
  Country: IT (occurrence: None)
  Receive Date: 20220913
  Receipt Date: 20220913
  Transmission Date: 20221027
  Serious: Yes (Hospitalization, Other)
  Sender: FDA-Public Use
  Company Number: IT-MICRO LABS LIMITED-ML2022-04600

PATIENT
  Age: 93 Year
  Sex: Female

DRUGS (13)
  1. SIMVASTATIN [Suspect]
     Active Substance: SIMVASTATIN
     Dosage: 20MG ON ALTERNATE DAYS
  2. SIMVASTATIN [Suspect]
     Active Substance: SIMVASTATIN
     Dosage: MODIFIED THERAPY
  3. SIMVASTATIN [Suspect]
     Active Substance: SIMVASTATIN
     Dosage: REDUCED DOSE: ON ALTERNATE DAYS
  4. SIMVASTATIN [Suspect]
     Active Substance: SIMVASTATIN
     Dosage: FURTHER REDUCED DOSE: 2 DAYS PER WEEK
  5. ASPIRIN [Suspect]
     Active Substance: ASPIRIN
  6. ASPIRIN [Suspect]
     Active Substance: ASPIRIN
     Dosage: MODIFIED THERAPY
  7. PANTOPRAZOLE [Suspect]
     Active Substance: PANTOPRAZOLE
     Indication: Gastrointestinal disorder prophylaxis
  8. CLOPIDOGREL [Suspect]
     Active Substance: CLOPIDOGREL BISULFATE
  9. AMLODIPINE [Suspect]
     Active Substance: AMLODIPINE BESYLATE
  10. LEVOTHYROXINE [Concomitant]
     Active Substance: LEVOTHYROXINE
  11. METOPROLOL [Concomitant]
     Active Substance: METOPROLOL
  12. LOSARTAN. [Concomitant]
  13. ISOSORBIDE MONONITRATE [Concomitant]
     Active Substance: ISOSORBIDE MONONITRATE

REACTIONS (5)
  - Cardiorenal syndrome [Recovering/Resolving]
  - Toxicity to various agents [Recovering/Resolving]
  - Peripheral swelling [Unknown]
  - Renal failure [Recovering/Resolving]
  - Rash erythematous [Unknown]
